FAERS Safety Report 9129722 (Version 1)
Quarter: 2013Q1

REPORT INFORMATION
  Report Type: Spontaneous
  Country: BR (occurrence: BR)
  Receive Date: 20130228
  Receipt Date: 20130228
  Transmission Date: 20140127
  Serious: Yes (Other)
  Sender: FDA-Public Use
  Company Number: PHHY2013BR019828

PATIENT
  Age: 72 Year
  Sex: Male

DRUGS (6)
  1. SINVASTACOR [Suspect]
     Indication: BLOOD CHOLESTEROL INCREASED
     Route: 048
  2. SYNTHYROID [Concomitant]
     Dosage: UNK
     Route: 048
     Dates: start: 2009
  3. AVODART [Concomitant]
     Indication: PROSTATOMEGALY
     Route: 048
     Dates: start: 201209
  4. DIOVAN [Concomitant]
     Route: 048
     Dates: start: 2009
  5. AAS [Concomitant]
     Route: 048
     Dates: start: 201109
  6. SELOZOK [Concomitant]
     Indication: ARRHYTHMIA
     Route: 048
     Dates: start: 201109

REACTIONS (6)
  - Prostatomegaly [Not Recovered/Not Resolved]
  - Painful defaecation [Recovering/Resolving]
  - Blood cholesterol increased [Not Recovered/Not Resolved]
  - Abdominal pain [Not Recovered/Not Resolved]
  - Abdominal pain upper [Not Recovered/Not Resolved]
  - Dizziness [Not Recovered/Not Resolved]
